FAERS Safety Report 4824768-5 (Version None)
Quarter: 2005Q4

REPORT INFORMATION
  Report Type: 
  Country: None (occurrence: None)
  Receive Date: 20051108
  Receipt Date: 20051101
  Transmission Date: 20060501
  Serious: Yes (Life-Threatening, Hospitalization)
  Sender: FDA-Public Use
  Company Number: 200513710GDS

PATIENT
  Age: 73 Year
  Sex: Male
  Weight: 66 kg

DRUGS (4)
  1. ACETYLSALICYLIC ACID [Suspect]
     Dosage: 80 MG, TOTAL DAILY,
  2. HEPARIN [Suspect]
     Dosage: 5000 U, INTRAVENOUS
     Route: 042
     Dates: start: 20050919
  3. TIROFIBAN [Suspect]
     Dosage: INTRAVENOUS BOLUS
     Route: 040
     Dates: start: 20050920
  4. PLAVIX [Suspect]
     Indication: ARTERIOGRAM CORONARY
     Dosage: 75 MG, TOTAL DAILY, ORAL
     Route: 048

REACTIONS (7)
  - ABDOMINAL PAIN [None]
  - ANAEMIA [None]
  - ARTERIAL INJURY [None]
  - IATROGENIC INJURY [None]
  - POST PROCEDURAL COMPLICATION [None]
  - RETROPERITONEAL HAEMORRHAGE [None]
  - SHOCK HAEMORRHAGIC [None]
